FAERS Safety Report 4385095-6 (Version None)
Quarter: 2004Q2

REPORT INFORMATION
  Report Type: 
  Country: None (occurrence: None)
  Receive Date: 20040621
  Receipt Date: 20040608
  Transmission Date: 20050107
  Serious: No
  Sender: FDA-Public Use
  Company Number: 2004GB01193

PATIENT
  Age: 59 Year
  Sex: Male

DRUGS (3)
  1. LOSEC [Suspect]
     Indication: DYSPEPSIA
     Dosage: 20 MG QD PO
     Route: 048
     Dates: start: 20040408, end: 20040410
  2. VALPROIC ACID [Suspect]
     Indication: EPILEPSY
     Dosage: 500 MG BID PO
     Route: 048
     Dates: start: 20030812, end: 20040410
  3. VALPROIC ACID [Suspect]
     Indication: EPILEPSY
     Dosage: 500 MG TID PO
     Route: 048
     Dates: start: 20040410

REACTIONS (2)
  - CONVULSION [None]
  - DRUG INTERACTION [None]
